FAERS Safety Report 13692640 (Version 2)
Quarter: 2017Q3

REPORT INFORMATION
  Report Type: Spontaneous
  Country: US (occurrence: US)
  Receive Date: 20170627
  Receipt Date: 20170705
  Transmission Date: 20171127
  Serious: No
  Sender: FDA-Public Use
  Company Number: US-PFIZER INC-2017276248

PATIENT
  Age: 68 Year
  Sex: Female

DRUGS (2)
  1. IBRANCE [Suspect]
     Active Substance: PALBOCICLIB
     Dosage: UNKNOWN DOSE, CYCLIC (FOR 14 DAYS)
     Dates: start: 20170617
  2. IBRANCE [Suspect]
     Active Substance: PALBOCICLIB
     Dosage: UNKNOWN DOSE, CYCLIC (FOR 21 DAYS)
     Dates: start: 20170518, end: 20170602

REACTIONS (7)
  - White blood cell count decreased [Unknown]
  - Decreased appetite [Unknown]
  - Peripheral swelling [Unknown]
  - Skin discolouration [Unknown]
  - Nausea [Not Recovered/Not Resolved]
  - Asthenia [Unknown]
  - Breast swelling [Unknown]
